FAERS Safety Report 25395879 (Version 6)
Quarter: 2025Q3

REPORT INFORMATION
  Report Type: Spontaneous
  Country: CO (occurrence: CO)
  Receive Date: 20250604
  Receipt Date: 20250804
  Transmission Date: 20251020
  Serious: No
  Sender: PFIZER
  Company Number: CO-PFIZER INC-PV202500066078

PATIENT
  Age: 5 Year
  Sex: Female
  Weight: 13 kg

DRUGS (1)
  1. GENOTROPIN [Suspect]
     Active Substance: SOMATROPIN
     Indication: Short stature
     Dosage: 0.4 MG, DAILY
     Route: 058
     Dates: start: 202502, end: 20250530

REACTIONS (4)
  - Device information output issue [Recovered/Resolved]
  - Device mechanical issue [Recovered/Resolved]
  - Drug dose omission by device [Recovered/Resolved]
  - Off label use [Unknown]

NARRATIVE: CASE EVENT DATE: 20250201
